FAERS Safety Report 4500667-3 (Version None)
Quarter: 2004Q4

REPORT INFORMATION
  Report Type: 
  Country: None (occurrence: None)
  Receive Date: 20041112
  Receipt Date: 20041112
  Transmission Date: 20050328
  Serious: Yes (Life-Threatening, Hospitalization)
  Sender: FDA-Public Use
  Company Number: None

PATIENT
  Age: 81 Year
  Sex: Female
  Weight: 78.0187 kg

DRUGS (1)
  1. LEVAQUIN [Suspect]
     Indication: GASTROENTERITIS
     Dosage: 250 MG IV
     Route: 042
     Dates: start: 20041029

REACTIONS (1)
  - ANAPHYLACTIC SHOCK [None]
